FAERS Safety Report 8255555 (Version 3)
Quarter: 2013Q4

REPORT INFORMATION
  Report Type: Spontaneous
  Country: JP (occurrence: JP)
  Receive Date: 20111118
  Receipt Date: 20131010
  Transmission Date: 20140711
  Serious: Yes (Hospitalization)
  Sender: FDA-Public Use
  Company Number: JP-BAYER-2011-111318

PATIENT
  Age: 61 Year
  Sex: Male

DRUGS (2)
  1. BAYASPIRIN [Suspect]
     Indication: BRAIN STEM INFARCTION
     Dosage: 100 MG, UNK
     Route: 048
     Dates: start: 201101
  2. CLOPIDOGREL SULFATE [Interacting]
     Indication: BRAIN STEM INFARCTION
     Dosage: 75 MG, UNK
     Route: 048
     Dates: start: 201101

REACTIONS (2)
  - Cerebral haemorrhage [Recovered/Resolved]
  - Labelled drug-drug interaction medication error [None]
